FAERS Safety Report 7651328-3 (Version None)
Quarter: 2011Q3

REPORT INFORMATION
  Report Type: 
  Country: None (occurrence: None)
  Receive Date: 20110802
  Receipt Date: 20110719
  Transmission Date: 20111222
  Serious: Yes (Hospitalization)
  Sender: FDA-Public Use
  Company Number: PHHY2011CR65379

PATIENT
  Age: 82 Year
  Sex: Female

DRUGS (6)
  1. DIOVAN [Suspect]
     Indication: HYPERTENSION
     Dosage: 160 MG, DAILY
     Route: 048
  2. NEXIUM [Concomitant]
  3. SEROLUX [Concomitant]
  4. ENZYPRIDE [Concomitant]
  5. VASTAREL [Concomitant]
  6. LORAZEPAM [Concomitant]

REACTIONS (1)
  - APPENDICITIS PERFORATED [None]
